FAERS Safety Report 16730975 (Version 1)
Quarter: 2019Q3

REPORT INFORMATION
  Report Type: Spontaneous
  Country: IT (occurrence: IT)
  Receive Date: 20190822
  Receipt Date: 20190822
  Transmission Date: 20191005
  Serious: Yes (Other)
  Sender: FDA-Public Use
  Company Number: IT-TEVA-2019-IT-1093958

PATIENT
  Age: 14 Year
  Sex: Female
  Weight: 114 kg

DRUGS (1)
  1. NEBIVOLOL. [Suspect]
     Active Substance: NEBIVOLOL
     Indication: HYPERTENSION
     Route: 048
     Dates: start: 20190102, end: 20190201

REACTIONS (2)
  - Headache [Recovering/Resolving]
  - Hemianopia [Recovering/Resolving]

NARRATIVE: CASE EVENT DATE: 20190201
